FAERS Safety Report 5301660-3 (Version None)
Quarter: 2007Q2

REPORT INFORMATION
  Report Type: 
  Country: None (occurrence: None)
  Receive Date: 20070419
  Receipt Date: 20070418
  Transmission Date: 20071010
  Serious: Yes (Other)
  Sender: FDA-Public Use
  Company Number: AU-BRISTOL-MYERS SQUIBB COMPANY-13751839

PATIENT
  Age: 56 Year

DRUGS (1)
  1. SPRYCEL [Suspect]

REACTIONS (1)
  - NEPHRITIS INTERSTITIAL [None]
